FAERS Safety Report 4830398-1 (Version None)
Quarter: 2005Q4

REPORT INFORMATION
  Report Type: 
  Country: None (occurrence: None)
  Receive Date: 20051114
  Receipt Date: 20051102
  Transmission Date: 20060501
  Serious: Yes (Death, Other)
  Sender: FDA-Public Use
  Company Number: 2005US001576

PATIENT
  Age: 12 Month
  Sex: Female

DRUGS (7)
  1. PROGRAF [Suspect]
     Indication: PROPHYLAXIS AGAINST TRANSPLANT REJECTION
     Dosage: 0.40 MG/KG, ORAL
     Route: 048
  2. PREDNISONE [Concomitant]
  3. SMZ-TMP (SULFAMETHOXAZOLE, TRIMETHOPRIM) [Concomitant]
  4. URSODIOL (URSODEOXYCHOLIC ACID) [Concomitant]
  5. LANSOPRAZOLE [Concomitant]
  6. GANCICLOVIR SODIUM [Concomitant]
  7. NYSTATIN [Concomitant]

REACTIONS (7)
  - ADENOVIRUS INFECTION [None]
  - BLOOD CREATININE INCREASED [None]
  - DRUG INTERACTION [None]
  - DRUG LEVEL DECREASED [None]
  - DRUG LEVEL INCREASED [None]
  - RESPIRATORY FAILURE [None]
  - SEPSIS [None]
